FAERS Safety Report 17453501 (Version 1)
Quarter: 2020Q1

REPORT INFORMATION
  Report Type: Spontaneous
  Country: US (occurrence: US)
  Receive Date: 20200224
  Receipt Date: 20200224
  Transmission Date: 20200409
  Serious: No
  Sender: FDA-Public Use
  Company Number: US-009507513-2002USA008498

PATIENT

DRUGS (3)
  1. DULERA [Suspect]
     Active Substance: FORMOTEROL FUMARATE DIHYDRATE\MOMETASONE FUROATE
  2. NASONEX [Suspect]
     Active Substance: MOMETASONE FUROATE
  3. PROVENTIL [Suspect]
     Active Substance: ALBUTEROL

REACTIONS (1)
  - Product dose omission [Unknown]
